FAERS Safety Report 4730939-9 (Version None)
Quarter: 2005Q3

REPORT INFORMATION
  Report Type: 
  Country: None (occurrence: None)
  Receive Date: 20050801
  Receipt Date: 20020516
  Transmission Date: 20060218
  Serious: Yes (Death, Other)
  Sender: FDA-Public Use
  Company Number: US-MERCK-0205USA01983

PATIENT
  Age: 87 Year
  Sex: Male

DRUGS (5)
  1. VIOXX [Suspect]
     Indication: OSTEOPOROSIS
     Route: 065
     Dates: start: 20000401
  2. ASPIRIN [Concomitant]
     Route: 065
  3. LASIX [Concomitant]
     Route: 065
  4. [THERAPY UNSPECIFIED] [Concomitant]
     Route: 065
  5. COUMADIN [Concomitant]
     Route: 065

REACTIONS (11)
  - ARRHYTHMIA [None]
  - BENIGN PROSTATIC HYPERPLASIA [None]
  - CARDIAC VALVE DISEASE [None]
  - CORONARY ARTERY DISEASE [None]
  - DEATH [None]
  - DYSPNOEA [None]
  - GLAUCOMA [None]
  - HAEMORRHAGE [None]
  - HEART RATE IRREGULAR [None]
  - MYOCARDIAL INFARCTION [None]
  - PERIPHERAL VASCULAR DISORDER [None]
